FAERS Safety Report 8094695-1 (Version None)
Quarter: 2012Q1

REPORT INFORMATION
  Report Type: 
  Country: None (occurrence: None)
  Receive Date: 20120129
  Receipt Date: 20111219
  Transmission Date: 20120608
  Serious: No
  Sender: FDA-Public Use
  Company Number: US-ABBOTT-11P-163-0885020-00

PATIENT
  Sex: Female
  Weight: 73.548 kg

DRUGS (12)
  1. CLONAZEPAM [Concomitant]
     Indication: ANXIETY
  2. CYMBALTA [Concomitant]
     Indication: DEPRESSION
  3. ONDANSETRON HCL [Concomitant]
     Indication: NAUSEA
  4. HUMIRA [Suspect]
     Indication: RHEUMATOID ARTHRITIS
     Dates: start: 20111201
  5. TRAZODONE HCL [Concomitant]
     Indication: SLEEP DISORDER THERAPY
  6. LEVOTHYROXINE SODIUM [Concomitant]
     Indication: HYPOTHYROIDISM
  7. HYDROCODONE BITARTRATE [Concomitant]
     Indication: FIBROMYALGIA
  8. HYDROCODONE BITARTRATE [Concomitant]
     Indication: ARTHRALGIA
  9. PREDNISONE TAB [Suspect]
     Dosage: TAPERING, 10 MG DAILY CURRENTLY
     Route: 048
  10. PREDNISONE TAB [Suspect]
     Indication: RHEUMATOID ARTHRITIS
     Dosage: TAPERING FROM 40MG DAILY
     Route: 048
     Dates: start: 20111201
  11. COUMADIN [Concomitant]
     Indication: THROMBOSIS
     Dates: start: 20110101
  12. OMEPRAZOLE [Concomitant]
     Indication: GASTROOESOPHAGEAL REFLUX DISEASE

REACTIONS (5)
  - JOINT SWELLING [None]
  - FATIGUE [None]
  - DYSPNOEA [None]
  - FLUID RETENTION [None]
  - PAIN [None]
